FAERS Safety Report 15751600 (Version 1)
Quarter: 2018Q4

REPORT INFORMATION
  Report Type: Spontaneous
  Country: US (occurrence: US)
  Receive Date: 20181221
  Receipt Date: 20181221
  Transmission Date: 20190205
  Serious: No
  Sender: FDA-Public Use
  Company Number: US-UPSHER-SMITH LABORATORIES, LLC-2018USL00083

PATIENT
  Sex: Female

DRUGS (1)
  1. KLOR-CON M [Suspect]
     Active Substance: POTASSIUM CHLORIDE

REACTIONS (2)
  - Peripheral swelling [Unknown]
  - Rash [Unknown]
